FAERS Safety Report 10220635 (Version 1)
Quarter: 2014Q2

REPORT INFORMATION
  Report Type: Spontaneous
  Country: US (occurrence: None)
  Receive Date: 20140605
  Receipt Date: 20140605
  Transmission Date: 20141212
  Serious: Yes (Life-Threatening, Disabling, Other)
  Sender: FDA-Public Use
  Company Number: None

PATIENT
  Age: 46 Year
  Sex: Female
  Weight: 77.11 kg

DRUGS (3)
  1. LEVETIRACETAM [Suspect]
     Indication: CONVULSION
     Dosage: LEVETIRACETAM ER ONCE DAILY TAKEN BY MOUTH
     Route: 048
  2. KEPPRA XR [Concomitant]
  3. GLYB/METFORMIN [Concomitant]

REACTIONS (4)
  - Syncope [None]
  - Sleep disorder [None]
  - Headache [None]
  - Hypersomnia [None]
